FAERS Safety Report 8964006 (Version 1)
Quarter: 2012Q4

REPORT INFORMATION
  Report Type: Report from Study
  Country: IT (occurrence: IT)
  Receive Date: 20121213
  Receipt Date: 20121213
  Transmission Date: 20130627
  Serious: Yes (Other)
  Sender: FDA-Public Use
  Company Number: IT-BAXTER-2012BAX026519

PATIENT
  Age: 49 Year
  Sex: Female
  Weight: 67 kg

DRUGS (9)
  1. ENDOXAN BAXTER [Suspect]
     Indication: BREAST CANCER
     Route: 042
     Dates: start: 20080818, end: 20080930
  2. TRASTUZUMAB [Suspect]
     Indication: BREAST CANCER
     Dosage: LOADING DOSE
     Route: 042
     Dates: start: 20080408, end: 20080408
  3. TRASTUZUMAB [Suspect]
     Route: 042
     Dates: start: 20080429, end: 20090113
  4. PERTUZUMAB [Suspect]
     Indication: BREAST CANCER
     Dosage: LOADING DOSE
     Route: 042
     Dates: start: 20080408, end: 20080408
  5. PERTUZUMAB [Suspect]
     Route: 042
     Dates: start: 20080429, end: 20080609
  6. DOCETAXEL [Suspect]
     Indication: BREAST CANCER
     Route: 042
     Dates: start: 20080408
  7. DOCETAXEL [Suspect]
     Route: 042
     Dates: end: 20080609
  8. FLUOROURACIL [Suspect]
     Indication: BREAST CANCER
     Route: 042
     Dates: start: 20080818, end: 20080930
  9. EPIRUBICIN [Suspect]
     Indication: BREAST CANCER
     Route: 042
     Dates: start: 20080818, end: 20080930

REACTIONS (1)
  - Left ventricular dysfunction [Recovered/Resolved]
